FAERS Safety Report 18321240 (Version 3)
Quarter: 2021Q2

REPORT INFORMATION
  Report Type: Spontaneous
  Country: US (occurrence: US)
  Receive Date: 20200929
  Receipt Date: 20210405
  Transmission Date: 20210717
  Serious: No
  Sender: FDA-Public Use
  Company Number: US-SA-2020SA258218

PATIENT
  Age: 27 Year
  Sex: Female

DRUGS (1)
  1. DUPIXENT [Suspect]
     Active Substance: DUPILUMAB
     Indication: DERMATITIS ATOPIC
     Dosage: 300 MG, QOW
     Route: 058
     Dates: start: 20200327

REACTIONS (7)
  - Arthralgia [Unknown]
  - Superficial injury of eye [Unknown]
  - Dry skin [Unknown]
  - Ocular hyperaemia [Unknown]
  - Dry eye [Unknown]
  - Arthropathy [Unknown]
  - Eye pain [Unknown]

NARRATIVE: CASE EVENT DATE: 2020
